FAERS Safety Report 12692730 (Version 1)
Quarter: 2016Q3

REPORT INFORMATION
  Report Type: Spontaneous
  Country: US (occurrence: US)
  Receive Date: 20160829
  Receipt Date: 20160829
  Transmission Date: 20161109
  Serious: No
  Sender: FDA-Public Use
  Company Number: US-TEVA-678476USA

PATIENT
  Age: 47 Year
  Sex: Male

DRUGS (3)
  1. AMPYRA [Concomitant]
     Active Substance: DALFAMPRIDINE
  2. LUNESTA [Concomitant]
     Active Substance: ESZOPICLONE
  3. COPAXONE [Suspect]
     Active Substance: GLATIRAMER ACETATE
     Indication: MULTIPLE SCLEROSIS
     Route: 058

REACTIONS (2)
  - Skin haemorrhage [Unknown]
  - Scab [Unknown]

NARRATIVE: CASE EVENT DATE: 201606
